FAERS Safety Report 20138600 (Version 1)
Quarter: 2021Q4

REPORT INFORMATION
  Report Type: Spontaneous
  Country: CN (occurrence: CN)
  Receive Date: 20211202
  Receipt Date: 20211202
  Transmission Date: 20220303
  Serious: Yes (Hospitalization, Other)
  Sender: FDA-Public Use
  Company Number: CN-GLAXOSMITHKLINE-CNCH2021APC085351

PATIENT
  Age: 21 Year
  Sex: Female
  Weight: 45 kg

DRUGS (3)
  1. IBUPROFEN [Suspect]
     Active Substance: IBUPROFEN
     Indication: Pyrexia
     Dosage: 1 DF, BID, CAPSULE
     Route: 048
     Dates: start: 20210101, end: 20210103
  2. AMOXICILLIN [Suspect]
     Active Substance: AMOXICILLIN
     Indication: Pyrexia
     Dosage: 1 DF, BID, CAPSULE
     Route: 048
     Dates: start: 20210101, end: 20210103
  3. CEFOXITIN [Suspect]
     Active Substance: CEFOXITIN SODIUM
     Indication: Product used for unknown indication
     Dosage: 2 G, BID, INJECTION
     Route: 041
     Dates: start: 20210104

REACTIONS (5)
  - Tubulointerstitial nephritis [Recovering/Resolving]
  - Glomerulonephritis rapidly progressive [Recovering/Resolving]
  - Haematuria [Recovered/Resolved]
  - Back pain [Recovering/Resolving]
  - Micturition frequency decreased [Recovering/Resolving]

NARRATIVE: CASE EVENT DATE: 20210103
